FAERS Safety Report 9818158 (Version 1)
Quarter: 2013Q4

REPORT INFORMATION
  Report Type: Spontaneous
  Country: US (occurrence: None)
  Receive Date: 20131223
  Receipt Date: 20131223
  Transmission Date: 20140711
  Serious: Yes (Other)
  Sender: FDA-Public Use
  Company Number: 222575

PATIENT
  Sex: Male

DRUGS (2)
  1. PICATO [Suspect]
     Indication: PRECANCEROUS CELLS PRESENT
     Dosage: 1 IN 1 D, DERMAL
     Dates: start: 20130707
  2. PICATO [Suspect]
     Indication: SKIN PAPILLOMA
     Dosage: 1 IN 1 D, DERMAL
     Dates: start: 20130707

REACTIONS (5)
  - Application site pain [None]
  - Off label use [None]
  - Medication error [None]
  - Incorrect dose administered [None]
  - Incorrect drug administration duration [None]
